FAERS Safety Report 6085099-1 (Version None)
Quarter: 2009Q1

REPORT INFORMATION
  Report Type: 
  Country: None (occurrence: None)
  Receive Date: 20090220
  Receipt Date: 20090216
  Transmission Date: 20090719
  Serious: Yes (Other)
  Sender: FDA-Public Use
  Company Number: AU-ASTRAZENECA-2009AP00678

PATIENT
  Age: 64 Year
  Sex: Male

DRUGS (6)
  1. FELODUR [Suspect]
     Indication: HYPERTENSION
     Route: 048
     Dates: start: 20050101, end: 20080205
  2. HYDROCHLOROTHIAZIDE [Concomitant]
     Route: 065
  3. FOLIC ACID [Concomitant]
     Route: 065
  4. SIMVASTATIN [Concomitant]
     Route: 065
  5. CHOLESTYRAMINE [Concomitant]
     Route: 065
  6. ASPIRIN [Concomitant]
     Route: 065

REACTIONS (3)
  - DENTAL PLAQUE [None]
  - GINGIVAL HYPERPLASIA [None]
  - RESORPTION BONE INCREASED [None]
